FAERS Safety Report 12980403 (Version 1)
Quarter: 2016Q4

REPORT INFORMATION
  Report Type: Spontaneous
  Country: DE (occurrence: DE)
  Receive Date: 20161128
  Receipt Date: 20161128
  Transmission Date: 20170207
  Serious: Yes (Life-Threatening, Hospitalization, Disabling)
  Sender: FDA-Public Use
  Company Number: DE-MYLANLABS-2016M1051190

PATIENT

DRUGS (5)
  1. LINEZOLID. [Suspect]
     Active Substance: LINEZOLID
     Indication: ANTIBIOTIC PROPHYLAXIS
     Dosage: 400 MG, TID (DAILY DOSE: 1200 MG MILLGRAM(S) EVERY DAYS)
     Dates: start: 20160118, end: 20160118
  2. RIFAMPICIN [Suspect]
     Active Substance: RIFAMPIN
     Dosage: 600 MG, QD (DAILY DOSE: 600 MG MILLGRAM(S) EVERY DAYS)
     Route: 048
     Dates: start: 20141229, end: 20150221
  3. CLINDAMYCIN. [Suspect]
     Active Substance: CLINDAMYCIN
     Dosage: 400 MG, TID (DAILY DOSE: 1200 MG MILLGRAM(S) EVERY DAYS)
     Dates: start: 20141228, end: 20141230
  4. VANCOMYCIN [Suspect]
     Active Substance: VANCOMYCIN
     Dosage: 1 G, BID (DAILY DOSE: 2 G GRAM(S) EVERY DAYS)
     Route: 042
     Dates: start: 20141230, end: 20150117
  5. COTRIM FORTE [Suspect]
     Active Substance: SULFAMETHOXAZOLE\TRIMETHOPRIM
     Dosage: 960 MG, BID (DAILY DOSE: 1920 MG MILLGRAM(S) EVERY DAYS)
     Route: 048
     Dates: start: 20140116, end: 20150221

REACTIONS (3)
  - Metastases to lymph nodes [Not Recovered/Not Resolved]
  - Metastases to liver [Not Recovered/Not Resolved]
  - Neuroendocrine tumour of the lung metastatic [Not Recovered/Not Resolved]

NARRATIVE: CASE EVENT DATE: 20160406
